FAERS Safety Report 9960660 (Version 1)
Quarter: 2014Q1

REPORT INFORMATION
  Report Type: Report from Study
  Country: US (occurrence: US)
  Receive Date: 20140305
  Receipt Date: 20140305
  Transmission Date: 20141002
  Serious: No
  Sender: FDA-Public Use
  Company Number: US-ABBVIE-13P-163-1108168-00

PATIENT
  Age: 29 Year
  Sex: Female
  Weight: 122.58 kg

DRUGS (5)
  1. HUMIRA [Suspect]
     Indication: CROHN^S DISEASE
     Route: 058
     Dates: start: 201305, end: 201305
  2. HUMIRA [Suspect]
     Route: 058
     Dates: start: 201306, end: 201306
  3. HUMIRA [Suspect]
     Route: 058
     Dates: start: 201306
  4. IBUPROFEN [Concomitant]
     Indication: PAIN
  5. MULTIVITAMIN [Concomitant]
     Indication: ROUTINE HEALTH MAINTENANCE

REACTIONS (2)
  - Blister [Unknown]
  - Ear infection [Recovering/Resolving]
